FAERS Safety Report 7527974-4 (Version None)
Quarter: 2011Q2

REPORT INFORMATION
  Report Type: 
  Country: None (occurrence: None)
  Receive Date: 20110607
  Receipt Date: 20110526
  Transmission Date: 20111010
  Serious: Yes (Hospitalization)
  Sender: FDA-Public Use
  Company Number: US-SHIONOGI USA, INC-2011000046

PATIENT
  Sex: Female
  Weight: 88.1 kg

DRUGS (3)
  1. LYRICA [Concomitant]
  2. TRIGLIDE [Suspect]
     Indication: BILIARY CIRRHOSIS PRIMARY
     Dosage: 160 MG, QD
     Route: 048
     Dates: start: 20071008, end: 20071108
  3. URSODIOL [Concomitant]

REACTIONS (1)
  - OESOPHAGITIS ULCERATIVE [None]
